FAERS Safety Report 9770434 (Version 2)
Quarter: 2014Q1

REPORT INFORMATION
  Report Type: Spontaneous
  Country: AU (occurrence: AU)
  Receive Date: 20131218
  Receipt Date: 20140306
  Transmission Date: 20141002
  Serious: Yes (Life-Threatening, Disabling, Other)
  Sender: FDA-Public Use
  Company Number: AU-ABBVIE-13P-008-1179350-00

PATIENT
  Sex: Male

DRUGS (1)
  1. LUCRIN [Suspect]
     Indication: PROSTATE CANCER
     Route: 030
     Dates: start: 2010

REACTIONS (6)
  - Prostate cancer metastatic [Unknown]
  - Prostatic haemorrhage [Unknown]
  - Bladder cancer [Unknown]
  - Necrosis [Unknown]
  - Dementia Alzheimer^s type [Unknown]
  - Prostate cancer metastatic [Unknown]
